FAERS Safety Report 20899139 (Version 1)
Quarter: 2022Q2

REPORT INFORMATION
  Report Type: Spontaneous
  Country: US (occurrence: US)
  Receive Date: 20220601
  Receipt Date: 20220601
  Transmission Date: 20220720
  Serious: Yes (Other)
  Sender: FDA-Public Use
  Company Number: US-AUROBINDO-AUR-APL-2022-018657

PATIENT
  Age: 18 Month
  Sex: Female
  Weight: 13 kg

DRUGS (2)
  1. AMOXICILLIN [Suspect]
     Active Substance: AMOXICILLIN
     Indication: Ear infection
     Dosage: 6 MILLILITER, TWO TIMES A DAY
     Dates: start: 20220514, end: 20220517
  2. AMOXICILLIN [Suspect]
     Active Substance: AMOXICILLIN
     Dosage: 6 MILLILITER, TWO TIMES A DAY
     Dates: start: 20220514, end: 20220517

REACTIONS (8)
  - Loss of consciousness [Not Recovered/Not Resolved]
  - Cough [Not Recovered/Not Resolved]
  - Crying [Not Recovered/Not Resolved]
  - Drooling [Not Recovered/Not Resolved]
  - Generalised oedema [Not Recovered/Not Resolved]
  - Lethargy [Not Recovered/Not Resolved]
  - Speech disorder [Not Recovered/Not Resolved]
  - Pain [Not Recovered/Not Resolved]

NARRATIVE: CASE EVENT DATE: 20220514
